FAERS Safety Report 7258926-X (Version None)
Quarter: 2011Q1

REPORT INFORMATION
  Report Type: 
  Country: None (occurrence: None)
  Receive Date: 20110129
  Receipt Date: 20100614
  Transmission Date: 20110831
  Serious: No
  Sender: FDA-Public Use
  Company Number: US-ABBOTT-10P-163-0651255-00

PATIENT
  Age: 66 Year
  Sex: Female

DRUGS (16)
  1. SODIUM BICARB [Concomitant]
     Indication: ACIDOSIS
  2. TUMS [Concomitant]
     Indication: GASTROOESOPHAGEAL REFLUX DISEASE
  3. PHAZIME [Concomitant]
     Indication: FLATULENCE
  4. TYLENOL-500 [Concomitant]
     Indication: ARTHRITIS
  5. IRON SUPPLEMENT [Concomitant]
     Indication: ANAEMIA
  6. GAS X [Concomitant]
     Indication: FLATULENCE
  7. CALCITRIAL [Concomitant]
     Indication: MINERAL SUPPLEMENTATION
  8. TUMS [Concomitant]
     Indication: MINERAL SUPPLEMENTATION
     Dosage: 1-2 WITH MEALS
  9. TAZTIA XT [Concomitant]
     Indication: HYPERTENSION
  10. GAS X [Concomitant]
  11. VITAMIN B-12 [Concomitant]
     Indication: PRODUCT USED FOR UNKNOWN INDICATION
  12. OMEPRAZOLE [Concomitant]
     Indication: GASTROOESOPHAGEAL REFLUX DISEASE
  13. RANITIDINE [Concomitant]
     Indication: GASTROOESOPHAGEAL REFLUX DISEASE
  14. HUMIRA [Suspect]
     Indication: CROHN'S DISEASE
     Dates: start: 20100528
  15. LEVOTHYROXINE SODIUM [Concomitant]
     Indication: HYPOTHYROIDISM
  16. PHAZIME [Concomitant]

REACTIONS (7)
  - ABDOMINAL PAIN UPPER [None]
  - INJECTION SITE HAEMATOMA [None]
  - EAR PAIN [None]
  - DECREASED APPETITE [None]
  - INJECTION SITE PAIN [None]
  - DIARRHOEA [None]
  - OROPHARYNGEAL PAIN [None]
